FAERS Safety Report 8575148-0 (Version None)
Quarter: 2012Q3

REPORT INFORMATION
  Report Type: 
  Country: None (occurrence: None)
  Receive Date: 20120807
  Receipt Date: 20120802
  Transmission Date: 20120928
  Serious: Yes (Hospitalization)
  Sender: FDA-Public Use
  Company Number: US-PFIZER INC-2012188358

PATIENT
  Age: 69 Year
  Sex: Male
  Weight: 106 kg

DRUGS (2)
  1. SUTENT [Suspect]
     Dosage: 37.5 MG, CYCLIC
  2. SUTENT [Suspect]
     Indication: RENAL CELL CARCINOMA
     Dosage: 50 MG, CYCLIC

REACTIONS (1)
  - MYOCARDIAL INFARCTION [None]
